FAERS Safety Report 13336384 (Version 1)
Quarter: 2017Q1

REPORT INFORMATION
  Report Type: Spontaneous
  Country: IN (occurrence: IN)
  Receive Date: 20170315
  Receipt Date: 20170315
  Transmission Date: 20170428
  Serious: Yes (Life-Threatening, Hospitalization, Other)
  Sender: FDA-Public Use
  Company Number: IN-SUN PHARMACEUTICAL INDUSTRIES LTD-2016R1-126452

PATIENT
  Age: 75 Year
  Sex: Male

DRUGS (3)
  1. ZOLEDRONIC ACID [Suspect]
     Active Substance: ZOLEDRONIC ACID
     Indication: OSTEOPOROSIS
     Dosage: 4MG AS INTRA VENOUS INFUSION IN 100 ML NORMAL SALINE OVER 1 HR
     Route: 042
  2. PIPERACILLIN AND TAZOBACTAM [Concomitant]
     Active Substance: PIPERACILLIN SODIUM\TAZOBACTAM SODIUM
     Indication: ANTIBIOTIC THERAPY
     Route: 065
  3. NORMAL SALINE [Concomitant]
     Active Substance: SODIUM CHLORIDE
     Indication: OSTEOPOROSIS
     Dosage: 4MG AS INTRA VENOUS INFUSION IN 100 ML NORMAL SALINE OVER 1 HR.
     Route: 042

REACTIONS (6)
  - Delirium [Recovered/Resolved]
  - Vomiting [Unknown]
  - Sinus tachycardia [Unknown]
  - Hypophosphataemia [Recovered/Resolved]
  - Hyponatraemia [Recovering/Resolving]
  - Hypocalcaemia [Recovering/Resolving]
